FAERS Safety Report 7237770-3 (Version None)
Quarter: 2011Q1

REPORT INFORMATION
  Report Type: 
  Country: None (occurrence: None)
  Receive Date: 20110113
  Receipt Date: 19990423
  Transmission Date: 20110831
  Serious: Yes (Other)
  Sender: FDA-Public Use
  Company Number: LEO-2011-00037

PATIENT
  Age: 80 Year
  Sex: Female

DRUGS (1)
  1. INNOHEP [Suspect]
     Indication: DEEP VEIN THROMBOSIS

REACTIONS (2)
  - OVERDOSE [None]
  - ABDOMINAL WALL HAEMATOMA [None]
